FAERS Safety Report 21839326 (Version 1)
Quarter: 2023Q1

REPORT INFORMATION
  Report Type: Spontaneous
  Country: US (occurrence: US)
  Receive Date: 20230109
  Receipt Date: 20230109
  Transmission Date: 20230417
  Serious: Yes (Other)
  Sender: FDA-Public Use
  Company Number: US-ALLERGAN-2300182US

PATIENT
  Sex: Female

DRUGS (3)
  1. RESTASIS [Suspect]
     Active Substance: CYCLOSPORINE
     Indication: Preoperative care
     Dosage: 2 GTT, BID
     Route: 047
     Dates: start: 202209, end: 20221121
  2. MINERALS\VITAMINS [Concomitant]
     Active Substance: MINERALS\VITAMINS
  3. TUMS [Concomitant]
     Active Substance: CALCIUM CARBONATE
     Indication: Gastrooesophageal reflux disease

REACTIONS (11)
  - Cataract [Unknown]
  - Eye contusion [Recovering/Resolving]
  - Ocular hyperaemia [Recovering/Resolving]
  - Photophobia [Recovering/Resolving]
  - Allergy to chemicals [Recovering/Resolving]
  - Conjunctivitis [Recovering/Resolving]
  - COVID-19 [Recovering/Resolving]
  - Cough [Recovered/Resolved]
  - Off label use [Unknown]
  - Eye irritation [Recovering/Resolving]
  - Drug ineffective [Unknown]

NARRATIVE: CASE EVENT DATE: 20220901
